FAERS Safety Report 11113887 (Version 4)
Quarter: 2015Q4

REPORT INFORMATION
  Report Type: Report from Study
  Country: BE (occurrence: BE)
  Receive Date: 20150514
  Receipt Date: 20151016
  Transmission Date: 20160304
  Serious: Yes (Hospitalization)
  Sender: FDA-Public Use
  Company Number: BE-ABBVIE-15P-013-1354856-00

PATIENT
  Sex: Female

DRUGS (10)
  1. DUODOPA [Suspect]
     Active Substance: CARBIDOPA\LEVODOPA
     Dosage: AM 3ML,CD 3.7ML/H IN 16HRS, ND 3.5ML/H IN 8HRS, ED 1.5ML
     Route: 050
     Dates: start: 20150126, end: 20150505
  2. DUODOPA [Suspect]
     Active Substance: CARBIDOPA\LEVODOPA
     Dosage: UNKNOWN
     Route: 050
     Dates: end: 20150804
  3. DUODOPA [Suspect]
     Active Substance: CARBIDOPA\LEVODOPA
     Indication: PARKINSON^S DISEASE
     Dosage: UNKNOWN
     Route: 050
     Dates: start: 20071030, end: 20071030
  4. DUODOPA [Suspect]
     Active Substance: CARBIDOPA\LEVODOPA
     Dosage: AM 3ML, CD 4ML/H IN 16HRS, ND 3.5ML/H IN 8HRS, ED 3ML
     Route: 050
     Dates: start: 20071030, end: 20130709
  5. DUODOPA [Suspect]
     Active Substance: CARBIDOPA\LEVODOPA
     Route: 050
     Dates: start: 20150508, end: 20150602
  6. DUODOPA [Suspect]
     Active Substance: CARBIDOPA\LEVODOPA
     Dosage: AM=0.ML; CD=3.7ML/HR DURING 16HRS; ED= 1.5ML; ND= 3.3ML/HR DURING 8 HOURS
     Route: 050
     Dates: start: 20150602
  7. PROLOPA [Concomitant]
     Active Substance: BENSERAZIDE\LEVODOPA
     Indication: PARKINSON^S DISEASE
     Dosage: 200/50MG, EMERGENCY MEDICATION: 5 A DAY
     Route: 048
  8. DUODOPA [Suspect]
     Active Substance: CARBIDOPA\LEVODOPA
     Dosage: AM 3ML, CD 3.8ML/H IN 16HRS, ND 3.5ML/H IN 8HRS, ED 1.5ML
     Route: 050
     Dates: start: 20130709, end: 20150126
  9. DUODOPA [Suspect]
     Active Substance: CARBIDOPA\LEVODOPA
     Route: 050
     Dates: start: 20150508
  10. DUODOPA [Suspect]
     Active Substance: CARBIDOPA\LEVODOPA
     Dosage: AM: 0ML; CD: 3.7ML/H FOR 16HRS; ND: 3.4ML/H FOR 8 HRS; ED:
     Route: 050
     Dates: start: 20150804

REACTIONS (8)
  - Stoma site inflammation [Recovered/Resolved]
  - Abdominal distension [Unknown]
  - Catheter site infection [Recovered/Resolved]
  - Dyskinesia [Recovering/Resolving]
  - Device dislocation [Unknown]
  - Impaired healing [Recovered/Resolved]
  - Stoma site haemorrhage [Recovered/Resolved]
  - Catheter site discharge [Recovered/Resolved]
